FAERS Safety Report 9044787 (Version 1)
Quarter: 2013Q1

REPORT INFORMATION
  Report Type: Report from Study
  Country: US (occurrence: US)
  Receive Date: 20130130
  Receipt Date: 20130130
  Transmission Date: 20140127
  Serious: No
  Sender: FDA-Public Use
  Company Number: US-ABBOTT-12P-163-0964124-00

PATIENT
  Age: 52 Year
  Sex: Female

DRUGS (16)
  1. HUMIRA 40 MG/0.8 ML PEN [Suspect]
     Indication: PSORIATIC ARTHROPATHY
     Dates: start: 20120225
  2. METHOTREXATE [Concomitant]
     Indication: PSORIATIC ARTHROPATHY
     Dosage: 2.5 MG, 8 TABS WEEKLY
     Route: 048
  3. VERAPAMIL [Concomitant]
     Indication: MITRAL VALVE PROLAPSE
     Dosage: 120 MG DAILY
     Route: 048
  4. TORSEMIDE [Concomitant]
     Indication: PROPHYLAXIS
     Dosage: HALF TAB, EVERY OTHER DAY
     Route: 048
  5. PREMARIN [Concomitant]
     Indication: HORMONE REPLACEMENT THERAPY
     Dosage: 0.45 MG DAILY
  6. PLAQUENIL [Concomitant]
     Indication: SWELLING
     Route: 048
  7. LOSARTAN [Concomitant]
     Indication: HYPERTENSION
     Dosage: 50 MG, HALF TAB DAILY
  8. FOLIC ACID [Concomitant]
     Indication: PROPHYLAXIS
     Dosage: 1 MG, 2 TABS, TWICE DAILY
  9. ACETAMINOPHEN [Concomitant]
     Indication: PAIN
     Route: 048
  10. B12 [Concomitant]
     Indication: ASTHENIA
     Dosage: MONTHLY
     Route: 030
  11. B12 [Concomitant]
     Indication: AMNESIA
  12. ZYRTEC [Concomitant]
     Indication: FOOD ALLERGY
     Dosage: 10 MG DAILY
     Route: 048
  13. BABY ASPIRIN [Concomitant]
     Indication: CARDIAC DISORDER
     Dosage: 81 MG DAILY
     Route: 048
  14. LIDODERM [Concomitant]
     Indication: PAIN
     Dosage: 1 PATCH EVERY 12 HOURS, AS NEEDED
  15. CULTIVATE CREAM [Concomitant]
     Indication: ECZEMA
     Dosage: APPLY TO THE AFFECTED AREA (FACE), AS NEEDED
  16. CLOBETASOL [Concomitant]
     Indication: ECZEMA
     Dosage: APPLY TO THE AFFECTED AREA (BODY, LEGS, AND ARMS), AS NEEDED

REACTIONS (2)
  - Injection site papule [Recovered/Resolved]
  - Injection site pain [Recovered/Resolved]
